FAERS Safety Report 7028680-5 (Version None)
Quarter: 2010Q4

REPORT INFORMATION
  Report Type: 
  Country: None (occurrence: None)
  Receive Date: 20101004
  Receipt Date: 20101004
  Transmission Date: 20110411
  Serious: Yes (Hospitalization, Other)
  Sender: FDA-Public Use
  Company Number: None

PATIENT
  Age: 79 Year
  Sex: Female
  Weight: 59.4212 kg

DRUGS (1)
  1. LIPITOR [Suspect]

REACTIONS (4)
  - CLOSTRIDIUM DIFFICILE SEPSIS [None]
  - DRUG INEFFECTIVE [None]
  - MOVEMENT DISORDER [None]
  - MYOPATHY [None]
